FAERS Safety Report 10246795 (Version 1)
Quarter: 2014Q2

REPORT INFORMATION
  Report Type: Spontaneous
  Country: JP (occurrence: JP)
  Receive Date: 20140619
  Receipt Date: 20140619
  Transmission Date: 20141212
  Serious: Yes (Hospitalization, Other)
  Sender: FDA-Public Use
  Company Number: JP-WATSON-2014-12778

PATIENT
  Age: 53 Year
  Sex: Male

DRUGS (1)
  1. SODIUM VALPROATE (UNKNOWN) [Suspect]
     Indication: OVERDOSE
     Dosage: 22 G, SINGLE
     Route: 065

REACTIONS (4)
  - Coma [Recovered/Resolved]
  - Liver function test abnormal [Unknown]
  - Drug level increased [Recovered/Resolved]
  - Overdose [Unknown]
